FAERS Safety Report 10185014 (Version 1)
Quarter: 2014Q2

REPORT INFORMATION
  Report Type: Spontaneous
  Country: US (occurrence: None)
  Receive Date: 20140519
  Receipt Date: 20140519
  Transmission Date: 20141212
  Serious: Yes (Other)
  Sender: FDA-Public Use
  Company Number: 2014NUEUSA00324

PATIENT
  Age: 78 Year
  Sex: Male

DRUGS (2)
  1. NUEDEXTA [Suspect]
     Indication: AFFECT LABILITY
  2. TOPROL (METOPROLOL SUCCINATE) [Concomitant]

REACTIONS (3)
  - Cardiac failure congestive [None]
  - Pulmonary oedema [None]
  - Brain natriuretic peptide increased [None]
